FAERS Safety Report 25755365 (Version 2)
Quarter: 2025Q4

REPORT INFORMATION
  Report Type: Report from Study
  Country: PR (occurrence: PR)
  Receive Date: 20250903
  Receipt Date: 20251230
  Transmission Date: 20260117
  Serious: No
  Sender: MALLINCKRODT
  Company Number: PR-MALLINCKRODT-MNK202505041

PATIENT
  Age: 66 Year
  Sex: Male
  Weight: 100 kg

DRUGS (17)
  1. CORTICOTROPIN [Suspect]
     Active Substance: CORTICOTROPIN
     Indication: Uveitis
     Dosage: 80 UNITS
     Route: 058
     Dates: start: 20240416
  2. CORTICOTROPIN [Suspect]
     Active Substance: CORTICOTROPIN
     Indication: Nephrotic syndrome
  3. CORTICOTROPIN [Suspect]
     Active Substance: CORTICOTROPIN
     Indication: Glomerulonephritis membranous
  4. CORTICOTROPIN [Suspect]
     Active Substance: CORTICOTROPIN
     Indication: Nephrotic syndrome
  5. CORTICOTROPIN [Suspect]
     Active Substance: CORTICOTROPIN
     Indication: Glomerulonephritis membranous
  6. LOKELMA [SODIUM ZIRCONIUM CYCLOSILICATE HYDRATE] [Concomitant]
     Dosage: UNKNOWN
     Route: 048
  7. MORNIFLUMATE [Concomitant]
     Active Substance: MORNIFLUMATE
     Dosage: UNKNOWN
     Route: 048
  8. FERROUS SULFATE [Concomitant]
     Active Substance: FERROUS SULFATE
     Dosage: UNKNOWN
     Route: 048
  9. CHOLECALCIFEROL [Concomitant]
     Active Substance: CHOLECALCIFEROL
     Dosage: UNKNOWN
     Route: 048
  10. FARXIGA [Concomitant]
     Active Substance: DAPAGLIFLOZIN PROPANEDIOL
     Dosage: UNKNOWN
     Route: 048
  11. ZETIA [Concomitant]
     Active Substance: EZETIMIBE
     Dosage: UNKNOWN
     Route: 048
  12. PREDNISONE [Concomitant]
     Active Substance: PREDNISONE
     Dosage: UNKNOWN
  13. ZYRTEC-D [Concomitant]
     Active Substance: CETIRIZINE HYDROCHLORIDE\PSEUDOEPHEDRINE HYDROCHLORIDE
     Dosage: UNKNOWN
     Route: 048
  14. GABAPENTIN [Concomitant]
     Active Substance: GABAPENTIN
     Dosage: UNKNOWN
     Route: 048
  15. IRBESARTAN [Concomitant]
     Active Substance: IRBESARTAN
     Dosage: UNKNOWN
     Route: 048
  16. BUMEX [Concomitant]
     Active Substance: BUMETANIDE
     Dosage: UNKNOWN
     Route: 048
  17. AMLODIPINE BESYLATE\ATORVASTATIN CALCIUM [Concomitant]
     Active Substance: AMLODIPINE BESYLATE\ATORVASTATIN CALCIUM
     Dosage: UNKNOWN
     Route: 048

REACTIONS (1)
  - Back pain [Not Recovered/Not Resolved]
